FAERS Safety Report 6831082-5 (Version None)
Quarter: 2010Q3

REPORT INFORMATION
  Report Type: 
  Country: None (occurrence: None)
  Receive Date: 20100712
  Receipt Date: 20100611
  Transmission Date: 20110219
  Serious: No
  Sender: FDA-Public Use
  Company Number: US-BAYER-201016944BCC

PATIENT
  Age: 79 Year
  Sex: Male
  Weight: 91 kg

DRUGS (2)
  1. ALEVE (CAPLET) [Suspect]
     Indication: PAIN IN EXTREMITY
     Dosage: AS USED: 220 MG  UNIT DOSE: 220 MG
     Route: 065
  2. ALEVE [Suspect]
     Indication: PAIN IN EXTREMITY
     Dosage: TOTAL DAILY DOSE: 220 MG  UNIT DOSE: 220 MG
     Route: 048
     Dates: start: 20100601

REACTIONS (2)
  - FOREIGN BODY [None]
  - THROAT IRRITATION [None]
